FAERS Safety Report 9356749 (Version 4)
Quarter: 2013Q4

REPORT INFORMATION
  Report Type: Spontaneous
  Country: NO (occurrence: NO)
  Receive Date: 20130619
  Receipt Date: 20131119
  Transmission Date: 20140711
  Serious: Yes (Death)
  Sender: FDA-Public Use
  Company Number: PHHY2013NO039173

PATIENT
  Age: 59 Year
  Sex: Female

DRUGS (6)
  1. SANDOSTATIN LAR [Suspect]
     Indication: CARCINOID SYNDROME
     Dosage: 40 MG, EVERY 3 WEEK
     Route: 058
     Dates: start: 20121106
  2. SANDOSTATIN LAR [Suspect]
     Indication: POST PROCEDURAL COMPLICATION
     Dosage: 40 MG, EVERY 3 WEEK
     Route: 058
     Dates: start: 20130423
  3. SANDOSTATIN LAR [Suspect]
     Dosage: 40 MG, EVERY 3 WEEK
     Route: 058
     Dates: start: 20121106, end: 20130423
  4. AVASTIN [Suspect]
     Indication: OVARIAN CANCER
     Dosage: 7.5 MG/KG, TIW
     Route: 065
     Dates: start: 20121003
  5. AVASTIN [Suspect]
     Dosage: 7.5 MG/KG, TIW
     Route: 065
     Dates: start: 20130313
  6. AVASTIN [Suspect]
     Route: 065
     Dates: start: 20121003, end: 20130313

REACTIONS (5)
  - Embolism [Fatal]
  - Pulmonary hypertension [Fatal]
  - Respiratory failure [Unknown]
  - Dyspnoea [Not Recovered/Not Resolved]
  - Incorrect route of drug administration [Unknown]
